FAERS Safety Report 25833030 (Version 1)
Quarter: 2025Q3

REPORT INFORMATION
  Report Type: Spontaneous
  Country: EU (occurrence: EU)
  Receive Date: 20250922
  Receipt Date: 20250922
  Transmission Date: 20251021
  Serious: Yes (Other)
  Sender: MYLAN
  Company Number: EU-BIOGARAN-B25001581

PATIENT
  Age: 79 Year
  Sex: Female

DRUGS (4)
  1. PANTOPRAZOLE [Suspect]
     Active Substance: PANTOPRAZOLE
     Indication: Gastrooesophageal reflux disease
     Dosage: 1 DOSAGE FORM, QD,(1 TABLET PER DAY, PANTOPRAZOLE NOS ENTERIC TABLET)
  2. PANTOPRAZOLE [Suspect]
     Active Substance: PANTOPRAZOLE
     Dosage: 1 DOSAGE FORM, QD,(1 TABLET PER DAY, PANTOPRAZOLE NOS ENTERIC TABLET)
     Route: 065
  3. PANTOPRAZOLE [Suspect]
     Active Substance: PANTOPRAZOLE
     Dosage: 1 DOSAGE FORM, QD,(1 TABLET PER DAY, PANTOPRAZOLE NOS ENTERIC TABLET)
     Route: 065
  4. PANTOPRAZOLE [Suspect]
     Active Substance: PANTOPRAZOLE
     Dosage: 1 DOSAGE FORM, QD,(1 TABLET PER DAY, PANTOPRAZOLE NOS ENTERIC TABLET)

REACTIONS (2)
  - Amnesia [Unknown]
  - Sleep disorder [Unknown]
